FAERS Safety Report 11107216 (Version 1)
Quarter: 2015Q2

REPORT INFORMATION
  Report Type: Spontaneous
  Country: LT (occurrence: LT)
  Receive Date: 20150512
  Receipt Date: 20150512
  Transmission Date: 20150821
  Serious: Yes (Life-Threatening, Hospitalization)
  Sender: FDA-Public Use
  Company Number: LT-PFIZER INC-2015157914

PATIENT
  Age: 42 Year
  Sex: Female
  Weight: 80 kg

DRUGS (2)
  1. ZOLOFT [Suspect]
     Active Substance: SERTRALINE HYDROCHLORIDE
     Dosage: 40 TABLETS ON ONE TIME
     Route: 048
     Dates: start: 20150401, end: 20150401
  2. LORAFEN [Suspect]
     Active Substance: LORAZEPAM
     Dosage: 20 TABLETS ON ONE TIME
     Route: 048
     Dates: start: 20150401, end: 20150401

REACTIONS (2)
  - Intentional overdose [Unknown]
  - Suicide attempt [Unknown]

NARRATIVE: CASE EVENT DATE: 20150401
